FAERS Safety Report 19129833 (Version 1)
Quarter: 2021Q2

REPORT INFORMATION
  Report Type: Spontaneous
  Country: US (occurrence: US)
  Receive Date: 20210413
  Receipt Date: 20210413
  Transmission Date: 20210717
  Serious: No
  Sender: FDA-Public Use
  Company Number: US-BAYER-2021-109090

PATIENT
  Age: 8 Year
  Sex: Male
  Weight: 24.3 kg

DRUGS (2)
  1. LEVONORGESTREL (ORAL) [Suspect]
     Active Substance: LEVONORGESTREL
  2. DUPIXENT [Concomitant]
     Active Substance: DUPILUMAB

REACTIONS (2)
  - Rash [Not Recovered/Not Resolved]
  - Pruritus [Recovering/Resolving]
